FAERS Safety Report 6851169-0 (Version None)
Quarter: 2010Q3

REPORT INFORMATION
  Report Type: 
  Country: None (occurrence: None)
  Receive Date: 20100716
  Receipt Date: 20080114
  Transmission Date: 20110219
  Serious: No
  Sender: FDA-Public Use
  Company Number: US-PFIZER INC-2007091580

PATIENT
  Sex: Male
  Weight: 65.9 kg

DRUGS (3)
  1. CHANTIX [Suspect]
     Indication: SMOKING CESSATION THERAPY
     Dates: start: 20070901
  2. DYNACIRC [Concomitant]
  3. ACETYLSALICYLIC ACID [Concomitant]

REACTIONS (2)
  - SENSATION OF HEAVINESS [None]
  - TREMOR [None]
